FAERS Safety Report 6159193-0 (Version None)
Quarter: 2009Q2

REPORT INFORMATION
  Report Type: 
  Country: None (occurrence: None)
  Receive Date: 20090417
  Receipt Date: 20090408
  Transmission Date: 20091009
  Serious: Yes (Other)
  Sender: FDA-Public Use
  Company Number: FR-PURDUE-GBR_2009_0005037

PATIENT
  Sex: Male

DRUGS (1)
  1. OXYNORM INJECTION 10MG/ML [Suspect]
     Indication: PAIN
     Dosage: 40 MG, BOLUS
     Route: 042
     Dates: start: 20090401, end: 20090401

REACTIONS (3)
  - CIRCUMSTANCE OR INFORMATION CAPABLE OF LEADING TO MEDICATION ERROR [None]
  - INCORRECT DOSE ADMINISTERED [None]
  - RESPIRATORY DISTRESS [None]
